FAERS Safety Report 18395423 (Version 1)
Quarter: 2020Q4

REPORT INFORMATION
  Report Type: Spontaneous
  Country: CA (occurrence: CA)
  Receive Date: 20201017
  Receipt Date: 20201017
  Transmission Date: 20210114
  Serious: Yes (Other)
  Sender: FDA-Public Use
  Company Number: CA-LUPIN PHARMACEUTICALS INC.-2020-07332

PATIENT
  Age: 66 Year
  Sex: Female

DRUGS (7)
  1. CIPROFLOXACIN. [Concomitant]
     Active Substance: CIPROFLOXACIN
     Indication: SEPTIC SHOCK
  2. SALMETEROL [Concomitant]
     Active Substance: SALMETEROL
     Indication: ASTHMA
     Dosage: UNK
     Route: 065
  3. CEFTRIAXONE. [Concomitant]
     Active Substance: CEFTRIAXONE
     Indication: SEPTIC SHOCK
  4. CEFTRIAXONE. [Concomitant]
     Active Substance: CEFTRIAXONE
     Indication: PNEUMONIA PSEUDOMONAL
     Dosage: UNK
     Route: 065
     Dates: start: 20200316
  5. HYDROXYCHLOROQUINE [Suspect]
     Active Substance: HYDROXYCHLOROQUINE
     Indication: COVID-19
     Dosage: 400 MILLIGRAM, SINGLE
     Route: 065
     Dates: start: 20200316, end: 20200316
  6. HYDROXYCHLOROQUINE [Suspect]
     Active Substance: HYDROXYCHLOROQUINE
     Dosage: 200 MILLIGRAM, QD
     Route: 065
     Dates: start: 20200317, end: 20200322
  7. CIPROFLOXACIN. [Concomitant]
     Active Substance: CIPROFLOXACIN
     Indication: PNEUMONIA PSEUDOMONAL
     Dosage: UNK
     Route: 065
     Dates: start: 20200316

REACTIONS (1)
  - Off label use [Unknown]
